FAERS Safety Report 7973454-1 (Version None)
Quarter: 2011Q4

REPORT INFORMATION
  Report Type: 
  Country: None (occurrence: None)
  Receive Date: 20111122
  Receipt Date: 20110822
  Transmission Date: 20120403
  Serious: No
  Sender: FDA-Public Use
  Company Number: PHHY2011USA51665

PATIENT
  Sex: Female

DRUGS (2)
  1. GILENYA [Suspect]
     Dosage: 0.5 MG, QD, ORAL, 0.5 MG, QOD, ORAL
     Route: 048
     Dates: start: 20110422
  2. GILENYA [Suspect]
     Dosage: 0.5 MG, QD, ORAL, 0.5 MG, QOD, ORAL
     Route: 048
     Dates: start: 20110422

REACTIONS (1)
  - NAUSEA [None]
